FAERS Safety Report 8905012 (Version 5)
Quarter: 2015Q2

REPORT INFORMATION
  Report Type: Spontaneous
  Country: US (occurrence: US)
  Receive Date: 20121109
  Receipt Date: 20150527
  Transmission Date: 20150821
  Serious: Yes (Hospitalization, Other)
  Sender: FDA-Public Use
  Company Number: US-ASTRAZENECA-2012SE83911

PATIENT
  Age: 70 Year
  Sex: Female
  Weight: 65.3 kg

DRUGS (17)
  1. ADVAIR HFA [Concomitant]
     Active Substance: FLUTICASONE PROPIONATE\SALMETEROL XINAFOATE
     Indication: LUNG DISORDER
     Dosage: 250/50 MCG/DOSE, 1 PUFF, EVERY 12 HRS
     Route: 055
  2. DUO-NEB [Concomitant]
     Dosage: 0.5 MG/3MG(2.5MG BASE)/3ML, TAKE 3 ML BY NEBULIZATION, EVERY 6 HRS AS ANEEDED
  3. LIPITOR [Concomitant]
     Active Substance: ATORVASTATIN CALCIUM
  4. COZAAR [Concomitant]
     Active Substance: LOSARTAN POTASSIUM
     Indication: BLOOD POTASSIUM ABNORMAL
     Route: 048
  5. MULTIVITAMIN [Concomitant]
     Active Substance: VITAMINS
     Dosage: DAILY
     Route: 048
  6. LASIX [Concomitant]
     Active Substance: FUROSEMIDE
     Indication: FLUID RETENTION
     Route: 048
  7. ACIDOPHILUS [Concomitant]
     Active Substance: LACTOBACILLUS ACIDOPHILUS
     Indication: ABDOMINAL DISCOMFORT
     Route: 048
     Dates: start: 2014
  8. NEXIUM [Suspect]
     Active Substance: ESOMEPRAZOLE MAGNESIUM
     Indication: ABDOMINAL DISCOMFORT
     Route: 048
  9. NORVASC [Concomitant]
     Active Substance: AMLODIPINE BESYLATE
     Route: 048
  10. VALIUM [Concomitant]
     Active Substance: DIAZEPAM
     Dosage: 5 MG, TWO TIMES A DAY AS NEEDED
     Route: 048
  11. NASONEX [Concomitant]
     Active Substance: MOMETASONE FUROATE
     Dosage: 2 SPRAY DAILY
     Route: 045
  12. MIRALAX [Concomitant]
     Active Substance: POLYETHYLENE GLYCOL 3350
     Route: 048
  13. TYLENOL [Concomitant]
     Active Substance: ACETAMINOPHEN
     Dosage: TAKE 650 MG BY MOUTH EVERY 6 HRS AS NEEDED
     Route: 048
  14. COZAAR [Concomitant]
     Active Substance: LOSARTAN POTASSIUM
     Indication: BLOOD PRESSURE ABNORMAL
     Route: 048
  15. LOPRESSOR [Concomitant]
     Active Substance: METOPROLOL TARTRATE
     Route: 048
  16. CRESTOR [Suspect]
     Active Substance: ROSUVASTATIN CALCIUM
     Indication: CORONARY ARTERY OCCLUSION
     Route: 048
  17. ASPIRIN. [Concomitant]
     Active Substance: ASPIRIN
     Indication: CARDIAC DISORDER
     Route: 048

REACTIONS (12)
  - Chronic obstructive pulmonary disease [Unknown]
  - Pneumonia bacterial [Unknown]
  - Intentional product misuse [Unknown]
  - Dyspnoea [Unknown]
  - Pain [Unknown]
  - Body height decreased [Unknown]
  - Myocardial infarction [Unknown]
  - Malaise [Unknown]
  - Bronchitis [Unknown]
  - Lung neoplasm malignant [Unknown]
  - Depression [Unknown]
  - Upper-airway cough syndrome [Unknown]

NARRATIVE: CASE EVENT DATE: 2003
